FAERS Safety Report 7393544-4 (Version None)
Quarter: 2011Q1

REPORT INFORMATION
  Report Type: 
  Country: None (occurrence: None)
  Receive Date: 20110331
  Receipt Date: 20110331
  Transmission Date: 20110831
  Serious: Yes (Disabling)
  Sender: FDA-Public Use
  Company Number: None

PATIENT
  Age: 13 Year
  Sex: Female
  Weight: 70 kg

DRUGS (1)
  1. RABBIT ANTI-THYMOCYTE 105 MG GENZYME [Suspect]
     Indication: TRANSPLANT REJECTION
     Dosage: 105 MG IV BOLUS
     Route: 040
     Dates: start: 20110106, end: 20110106

REACTIONS (1)
  - ADVERSE DRUG REACTION [None]
